FAERS Safety Report 6499941-3 (Version None)
Quarter: 2009Q4

REPORT INFORMATION
  Report Type: 
  Country: None (occurrence: None)
  Receive Date: 20091216
  Receipt Date: 20091209
  Transmission Date: 20100525
  Serious: Yes (Hospitalization, Other)
  Sender: FDA-Public Use
  Company Number: GB-RANBAXY-2009RR-23556

PATIENT
  Age: 66 Year
  Sex: Male

DRUGS (7)
  1. AMIODARONE HCL [Suspect]
     Indication: VENTRICULAR TACHYCARDIA
     Route: 048
  2. AMIODARONE HCL [Suspect]
     Dosage: 400 MG, QD
     Route: 048
  3. AMIODARONE HCL [Suspect]
     Route: 042
  4. BISOPROLOL [Suspect]
     Indication: VENTRICULAR TACHYCARDIA
     Route: 065
  5. MAGNESIUM [Suspect]
     Indication: VENTRICULAR TACHYCARDIA
     Route: 042
  6. MEXITIL [Suspect]
     Indication: VENTRICULAR TACHYCARDIA
     Dosage: 750 MG, QD
     Route: 065
  7. RAMIPRIL [Suspect]
     Indication: VENTRICULAR TACHYCARDIA
     Route: 065

REACTIONS (2)
  - DRUG INEFFECTIVE [None]
  - VENTRICULAR TACHYCARDIA [None]
